FAERS Safety Report 17942940 (Version 1)
Quarter: 2020Q2

REPORT INFORMATION
  Report Type: Spontaneous
  Country: US (occurrence: US)
  Receive Date: 20200625
  Receipt Date: 20200625
  Transmission Date: 20200714
  Serious: No
  Sender: FDA-Public Use
  Company Number: None

PATIENT
  Age: 89 Year
  Sex: Male
  Weight: 65 kg

DRUGS (4)
  1. DILAUDID [Suspect]
     Active Substance: HYDROMORPHONE HYDROCHLORIDE
     Indication: PAIN
     Route: 042
     Dates: start: 20200223, end: 20200223
  2. ATORVASTATIN 40MG [Concomitant]
     Active Substance: ATORVASTATIN
     Dates: start: 20200222, end: 20200306
  3. AMIODARONE 200MG [Concomitant]
     Active Substance: AMIODARONE
     Dates: start: 20200222, end: 20200306
  4. ALLOPURINOL 100MG [Concomitant]
     Active Substance: ALLOPURINOL
     Dates: start: 20200222, end: 20200306

REACTIONS (3)
  - Blood pressure decreased [None]
  - Respiratory rate increased [None]
  - Lethargy [None]

NARRATIVE: CASE EVENT DATE: 20200223
